FAERS Safety Report 5013550-4 (Version None)
Quarter: 2006Q2

REPORT INFORMATION
  Report Type: 
  Country: None (occurrence: None)
  Receive Date: 20060530
  Receipt Date: 20060426
  Transmission Date: 20061013
  Serious: Yes (Hospitalization)
  Sender: FDA-Public Use
  Company Number: US-BRISTOL-MYERS SQUIBB COMPANY-13358148

PATIENT
  Age: 76 Year
  Sex: Female

DRUGS (7)
  1. CISPLATIN [Suspect]
     Route: 042
     Dates: start: 20050125
  2. TS-1 [Suspect]
     Route: 048
     Dates: start: 20050125, end: 20050211
  3. ZOFRAN [Concomitant]
     Indication: ANTIEMETIC SUPPORTIVE CARE
     Route: 048
     Dates: start: 20050125
  4. COLACE [Concomitant]
     Indication: DIARRHOEA
     Route: 048
     Dates: start: 20050118
  5. EMEND [Concomitant]
     Indication: ANTIEMETIC SUPPORTIVE CARE
     Route: 048
     Dates: start: 20050125, end: 20050127
  6. LASIX [Concomitant]
     Indication: DIURETIC THERAPY
     Route: 048
     Dates: start: 20050125
  7. FENTANYL [Concomitant]
     Indication: PAIN
     Route: 062
     Dates: start: 20050125

REACTIONS (1)
  - DEHYDRATION [None]
